FAERS Safety Report 12446256 (Version 2)
Quarter: 2016Q3

REPORT INFORMATION
  Report Type: Spontaneous
  Country: IT (occurrence: IT)
  Receive Date: 20160608
  Receipt Date: 20160701
  Transmission Date: 20161109
  Serious: Yes (Other)
  Sender: FDA-Public Use
  Company Number: IT-HORIZON-PRE-0175-2016

PATIENT
  Age: 85 Year
  Sex: Female

DRUGS (2)
  1. LODOTRA 5 MG [Suspect]
     Active Substance: PREDNISONE
     Indication: ARTHRALGIA
     Dosage: 2.5 MG DAILY; INITIALLY 5 MG DAILY, DOSE REDUCED
     Route: 048
     Dates: start: 20160330, end: 20160510
  2. DELTACORTENE [Suspect]
     Active Substance: PREDNISONE
     Indication: ARTHRALGIA
     Dosage: 12.5 MG DAILY
     Route: 048
     Dates: start: 20160330

REACTIONS (2)
  - Thinking abnormal [Recovering/Resolving]
  - Conduct disorder [Recovering/Resolving]

NARRATIVE: CASE EVENT DATE: 20160503
